FAERS Safety Report 23263843 (Version 2)
Quarter: 2024Q1

REPORT INFORMATION
  Report Type: Spontaneous
  Country: US (occurrence: US)
  Receive Date: 20231205
  Receipt Date: 20240226
  Transmission Date: 20240410
  Serious: No
  Sender: FDA-Public Use
  Company Number: US-SA-SAC20231130000975

PATIENT
  Age: 65 Year
  Sex: Male

DRUGS (12)
  1. DUPIXENT [Suspect]
     Active Substance: DUPILUMAB
     Indication: Neurodermatitis
     Dosage: 300MG/2ML; 2PENS 600MG; 1X
     Route: 058
     Dates: start: 20231030, end: 20231030
  2. DUPIXENT [Suspect]
     Active Substance: DUPILUMAB
     Dosage: 300MG; QOW
     Route: 058
     Dates: start: 20231119
  3. FUROSEMIDE [Concomitant]
     Active Substance: FUROSEMIDE
     Dosage: UNKNOWN
  4. ATORVASTATIN [Concomitant]
     Active Substance: ATORVASTATIN
     Dosage: UNKNOWN
  5. PANTOPRAZOLE [Concomitant]
     Active Substance: PANTOPRAZOLE
     Dosage: UNKNOWN
  6. MONTELUKAST [Concomitant]
     Active Substance: MONTELUKAST SODIUM
     Dosage: UNKNOWN
  7. CETIRIZINE [Concomitant]
     Active Substance: CETIRIZINE HYDROCHLORIDE
     Dosage: UNKNOWN
  8. ALIGN [Concomitant]
     Active Substance: BIFIDOBACTERIUM LONGUM SUBSP. INFANTIS
     Dosage: UNKNOWN
  9. METHOTREXATE [Concomitant]
     Active Substance: METHOTREXATE
     Dosage: UNKNOWN
  10. FOLIC ACID [Concomitant]
     Active Substance: FOLIC ACID
     Dosage: UNKNOWN
  11. ALBUTEROL [Concomitant]
     Active Substance: ALBUTEROL
     Dosage: UNKNOWN
  12. PEPCID [Concomitant]
     Active Substance: FAMOTIDINE
     Dosage: UNKNOWN

REACTIONS (8)
  - Skin ulcer [Unknown]
  - Pain of skin [Unknown]
  - Condition aggravated [Unknown]
  - Scratch [Unknown]
  - Condition aggravated [Unknown]
  - Inappropriate schedule of product administration [Unknown]
  - Acne [Unknown]
  - Stress [Unknown]

NARRATIVE: CASE EVENT DATE: 20231101
